FAERS Safety Report 7364023-5 (Version None)
Quarter: 2011Q1

REPORT INFORMATION
  Report Type: 
  Country: None (occurrence: None)
  Receive Date: 20110321
  Receipt Date: 20110307
  Transmission Date: 20110831
  Serious: Yes (Disabling, Other)
  Sender: FDA-Public Use
  Company Number: PHHY2011FR18859

PATIENT
  Sex: Female

DRUGS (5)
  1. ZOMETA [Suspect]
     Indication: BREAST CANCER METASTATIC
     Dosage: 4 MG/M2, UNK
     Route: 042
     Dates: start: 20100816
  2. AVASTIN [Concomitant]
     Indication: BREAST CANCER METASTATIC
     Dosage: UNK
     Dates: start: 20100801
  3. NAVELBINE [Suspect]
     Indication: BREAST CANCER METASTATIC
     Dosage: 25 MG/M2, UNK
     Dates: start: 20101115, end: 20101213
  4. TAXOL [Concomitant]
     Indication: BREAST CANCER METASTATIC
     Dosage: UNK
     Dates: start: 20100801
  5. FLUOROURACIL [Suspect]
     Dosage: 2500 MG/M2, UNK
     Dates: start: 20101116, end: 20101213

REACTIONS (4)
  - NEUROPATHY PERIPHERAL [None]
  - ERECTILE DYSFUNCTION [None]
  - PARAESTHESIA [None]
  - NEOPLASM MALIGNANT [None]
